FAERS Safety Report 22650514 (Version 1)
Quarter: 2023Q2

REPORT INFORMATION
  Report Type: Report from Study
  Country: IT (occurrence: IT)
  Receive Date: 20230628
  Receipt Date: 20230628
  Transmission Date: 20230722
  Serious: Yes (Death, Other)
  Sender: FDA-Public Use
  Company Number: IT-PFM-2023-03641

PATIENT
  Sex: Male

DRUGS (4)
  1. ENCORAFENIB [Suspect]
     Active Substance: ENCORAFENIB
     Indication: Colorectal cancer metastatic
     Dosage: 300 MG, DAILY (4 DF OF 75 MG)
     Route: 048
     Dates: start: 202211, end: 202302
  2. ENCORAFENIB [Suspect]
     Active Substance: ENCORAFENIB
     Indication: BRAF V600E mutation positive
  3. ERBITUX [Concomitant]
     Active Substance: CETUXIMAB
     Indication: Colorectal cancer metastatic
     Dosage: UNK, ONCE A WEEK
     Route: 065
     Dates: start: 202211, end: 202302
  4. ERBITUX [Concomitant]
     Active Substance: CETUXIMAB
     Indication: BRAF V600E mutation positive

REACTIONS (2)
  - Hepatic failure [Fatal]
  - Neoplasm progression [Unknown]
